FAERS Safety Report 9259155 (Version 1)
Quarter: 2013Q2

REPORT INFORMATION
  Report Type: Spontaneous
  Country: US (occurrence: US)
  Receive Date: 20130426
  Receipt Date: 20130426
  Transmission Date: 20140414
  Serious: Yes (Other)
  Sender: FDA-Public Use
  Company Number: CHPA2012US013020

PATIENT
  Age: 55 Year
  Sex: Male

DRUGS (3)
  1. 4 WAY MENTHOLATED NASAL SPRAY [Suspect]
     Indication: NASOPHARYNGITIS
     Dosage: 1 TO 3 DF, PRN
     Route: 045
     Dates: start: 1972
  2. 4 WAY MENTHOLATED NASAL SPRAY [Suspect]
     Indication: SEASONAL ALLERGY
  3. 4 WAY MENTHOLATED NASAL SPRAY [Suspect]
     Indication: HYPERSENSITIVITY

REACTIONS (3)
  - Drug dependence [Not Recovered/Not Resolved]
  - Off label use [Unknown]
  - Underdose [Unknown]
